FAERS Safety Report 9704939 (Version 1)
Quarter: 2013Q4

REPORT INFORMATION
  Report Type: Report from Study
  Country: AR (occurrence: AR)
  Receive Date: 20131122
  Receipt Date: 20131122
  Transmission Date: 20140711
  Serious: Yes (Hospitalization, Other)
  Sender: FDA-Public Use
  Company Number: PHHY2013AR134298

PATIENT
  Sex: Female

DRUGS (1)
  1. DIOVAN D [Suspect]
     Indication: BLOOD PRESSURE INCREASED
     Dosage: 1 DF, (320/25 MG)
     Route: 048

REACTIONS (3)
  - Weight decreased [Unknown]
  - Hypertension [Unknown]
  - Nervousness [Unknown]
